FAERS Safety Report 6169284-6 (Version None)
Quarter: 2009Q2

REPORT INFORMATION
  Report Type: 
  Country: None (occurrence: None)
  Receive Date: 20090424
  Receipt Date: 20090420
  Transmission Date: 20091009
  Serious: Yes (Hospitalization)
  Sender: FDA-Public Use
  Company Number: SPV1-2009-00749

PATIENT
  Age: 71 Year
  Sex: Male

DRUGS (1)
  1. FOSRENOL [Suspect]
     Indication: HYPERPHOSPHATAEMIA
     Dosage: 1000 MG, WITH MEALS, ORAL
     Route: 048
     Dates: start: 20050101

REACTIONS (2)
  - DIARRHOEA [None]
  - GASTRIC HAEMORRHAGE [None]
